FAERS Safety Report 6247869-6 (Version None)
Quarter: 2009Q2

REPORT INFORMATION
  Report Type: 
  Country: None (occurrence: None)
  Receive Date: 20090626
  Receipt Date: 20090518
  Transmission Date: 20091009
  Serious: No
  Sender: FDA-Public Use
  Company Number: US-TYCO HEALTHCARE/MALLINCKRODT-T200901071

PATIENT
  Age: 41 Year
  Sex: Female

DRUGS (2)
  1. TECHNETIUM TC 99M SESTAMIBI [Suspect]
     Dosage: UNK
     Dates: start: 20090518, end: 20090518
  2. ULTRA-TECHNEKOW [Suspect]
     Dosage: UNK
     Dates: start: 20090518, end: 20090518

REACTIONS (1)
  - ACCIDENTAL EXPOSURE [None]
